FAERS Safety Report 6421652-0 (Version None)
Quarter: 2009Q4

REPORT INFORMATION
  Report Type: 
  Country: None (occurrence: None)
  Receive Date: 20091030
  Receipt Date: 20091021
  Transmission Date: 20100525
  Serious: Yes (Death)
  Sender: FDA-Public Use
  Company Number: US-JNJFOC-20090706178

PATIENT
  Sex: Male

DRUGS (8)
  1. REMICADE [Suspect]
     Indication: RHEUMATOID ARTHRITIS
     Route: 042
  2. COUMADIN [Concomitant]
  3. ASPIRIN [Concomitant]
  4. TOPROL-XL [Concomitant]
  5. LISINOPRIL [Concomitant]
  6. METHOTREXATE [Concomitant]
  7. PROTONIX [Concomitant]
  8. COREG [Concomitant]

REACTIONS (3)
  - AORTIC VALVE REPLACEMENT [None]
  - CARDIAC ARREST [None]
  - MYOCARDIAL INFARCTION [None]
